FAERS Safety Report 15719608 (Version 10)
Quarter: 2019Q3

REPORT INFORMATION
  Report Type: Report from Study
  Country: US (occurrence: US)
  Receive Date: 20181213
  Receipt Date: 20190923
  Transmission Date: 20191004
  Serious: Yes (Hospitalization, Other)
  Sender: FDA-Public Use
  Company Number: US-EISAI MEDICAL RESEARCH-EC-2018-049000

PATIENT
  Age: 79 Year
  Sex: Male
  Weight: 108.6 kg

DRUGS (23)
  1. LENVATINIB [Suspect]
     Active Substance: LENVATINIB
     Indication: NEOPLASM
     Route: 048
     Dates: start: 20181106, end: 20181108
  2. FLEXERIL [Concomitant]
     Active Substance: CYCLOBENZAPRINE HYDROCHLORIDE
  3. ASPIRIN. [Concomitant]
     Active Substance: ASPIRIN
  4. CHOLECALCIFEROL [Concomitant]
     Active Substance: CHOLECALCIFEROL
  5. TYLENOL [Concomitant]
     Active Substance: ACETAMINOPHEN
  6. RYTHMOL [Concomitant]
     Active Substance: PROPAFENONE HYDROCHLORIDE
  7. COLCHICINE. [Concomitant]
     Active Substance: COLCHICINE
  8. PARICALCITOL. [Concomitant]
     Active Substance: PARICALCITOL
  9. ANDROGEL [Concomitant]
     Active Substance: TESTOSTERONE
  10. NORVASC [Concomitant]
     Active Substance: AMLODIPINE BESYLATE
  11. COUMADIN [Concomitant]
     Active Substance: WARFARIN SODIUM
  12. LENVATINIB [Suspect]
     Active Substance: LENVATINIB
     Route: 048
     Dates: start: 20181117, end: 20181201
  13. PEMBROLIZUMAB. [Suspect]
     Active Substance: PEMBROLIZUMAB
     Indication: NEOPLASM
     Route: 041
     Dates: start: 20181106, end: 20181127
  14. TOPROL XL [Concomitant]
     Active Substance: METOPROLOL SUCCINATE
  15. ZYLOPRIM [Concomitant]
     Active Substance: ALLOPURINOL
  16. ZOFRAN [Concomitant]
     Active Substance: ONDANSETRON HYDROCHLORIDE
  17. VITAMIN B COMPLEX [Concomitant]
     Active Substance: CYANOCOBALAMIN\DEXPANTHENOL\NIACINAMIDE\PYRIDOXINE HYDROCHLORIDE\RIBOFLAVIN 5^-PHOSPHATE SODIUM\THIAMINE HYDROCHLORIDE\VITAMIN B COMPLEX
  18. LENVATINIB [Suspect]
     Active Substance: LENVATINIB
     Route: 048
     Dates: start: 20181112, end: 20181115
  19. ZESTRIL [Concomitant]
     Active Substance: LISINOPRIL
  20. FLORINEF ACETATE [Concomitant]
     Active Substance: FLUDROCORTISONE ACETATE
  21. DILAUDID [Concomitant]
     Active Substance: HYDROMORPHONE HYDROCHLORIDE
  22. SYNTHROID [Concomitant]
     Active Substance: LEVOTHYROXINE SODIUM
  23. CORTEF [Concomitant]
     Active Substance: HYDROCORTISONE

REACTIONS (6)
  - Hyperkalaemia [Recovered/Resolved]
  - Pneumonitis [Recovered/Resolved]
  - Acute kidney injury [Recovered/Resolved]
  - Muscular weakness [Recovered/Resolved]
  - Autoimmune haemolytic anaemia [Not Recovered/Not Resolved]
  - Confusional state [Recovered/Resolved]

NARRATIVE: CASE EVENT DATE: 20181130
